FAERS Safety Report 8909280 (Version 2)
Quarter: 2013Q1

REPORT INFORMATION
  Report Type: Spontaneous
  Country: US (occurrence: None)
  Receive Date: 20121018
  Receipt Date: 20121102
  Transmission Date: 20140127
  Serious: Yes (Hospitalization)
  Sender: FDA-Public Use
  Company Number: 2012PROUSA02107

PATIENT
  Age: 57 Year
  Sex: Male
  Weight: 138.3 kg

DRUGS (1)
  1. PROVENGE (SIPULEUCEL-T) SUSPENSION, 250ML [Suspect]
     Indication: PROSTATE CANCER METASTATIC
     Dosage: SINGLE
     Route: 042
     Dates: start: 20120920, end: 20120920

REACTIONS (9)
  - Bacterial infection [None]
  - Bacterial infection [None]
  - Device related infection [None]
  - Nausea [None]
  - Vomiting [None]
  - Blood pressure increased [None]
  - Sinus tachycardia [None]
  - White blood cell count decreased [None]
  - Bacteraemia [None]
